FAERS Safety Report 7536245-1 (Version None)
Quarter: 2011Q2

REPORT INFORMATION
  Report Type: 
  Country: None (occurrence: None)
  Receive Date: 20110609
  Receipt Date: 20110608
  Transmission Date: 20111010
  Serious: Yes (Hospitalization, Other)
  Sender: FDA-Public Use
  Company Number: US-BRISTOL-MYERS SQUIBB COMPANY-15647365

PATIENT
  Age: 43 Year
  Sex: Male

DRUGS (6)
  1. IMIPENEM [Concomitant]
     Route: 042
     Dates: start: 20110417, end: 20110424
  2. BENICAR [Concomitant]
     Dates: start: 20080715
  3. IPILIMUMAB [Suspect]
     Indication: MALIGNANT MELANOMA
     Dosage: 1DF: 366.9 UNITS NOS,28FEB2011.
     Route: 042
     Dates: start: 20110228, end: 20110321
  4. CLARITIN [Concomitant]
     Dates: start: 20080715
  5. FLUCONAZOLE [Concomitant]
     Route: 042
     Dates: start: 20110417, end: 20110422
  6. ZYVOX [Concomitant]
     Dates: start: 20110417, end: 20110426

REACTIONS (5)
  - COLITIS [None]
  - HYPOTENSION [None]
  - DIARRHOEA [None]
  - INTESTINAL PERFORATION [None]
  - WOUND INFECTION [None]
